FAERS Safety Report 12262296 (Version 2)
Quarter: 2016Q2

REPORT INFORMATION
  Report Type: Spontaneous
  Country: US (occurrence: US)
  Receive Date: 20160413
  Receipt Date: 20160429
  Transmission Date: 20160815
  Serious: Yes (Death)
  Sender: FDA-Public Use
  Company Number: US-MYLANLABS-2016M1015292

PATIENT

DRUGS (2)
  1. ACETAMINOPHEN W/HYDROCODONE [Concomitant]
     Active Substance: ACETAMINOPHEN\HYDROCODONE
     Route: 065
  2. GABAPENTIN. [Suspect]
     Active Substance: GABAPENTIN
     Indication: PRODUCT USED FOR UNKNOWN INDICATION
     Dosage: INGESTED 26 TABLETS OF 600 MG GABAPENTIN
     Route: 048

REACTIONS (4)
  - Pneumonia [Fatal]
  - Intentional overdose [Fatal]
  - Toxicity to various agents [Fatal]
  - Respiratory depression [Fatal]
